FAERS Safety Report 8569773-0 (Version None)
Quarter: 2012Q3

REPORT INFORMATION
  Report Type: 
  Country: None (occurrence: None)
  Receive Date: 20120803
  Receipt Date: 20120119
  Transmission Date: 20120928
  Serious: No
  Sender: FDA-Public Use
  Company Number: US-ABBOTT-12P-163-0895455-00

PATIENT
  Sex: Female
  Weight: 66.738 kg

DRUGS (7)
  1. NIASPAN [Suspect]
     Dates: start: 20110601, end: 20111229
  2. ATENOLOL [Concomitant]
     Indication: HYPERTENSION
  3. ASPIRIN [Concomitant]
     Indication: CARDIOVASCULAR EVENT PROPHYLAXIS
  4. NIASPAN [Suspect]
     Indication: HIGH DENSITY LIPOPROTEIN DECREASED
     Dates: start: 20100601, end: 20110601
  5. SIMVASTATIN [Concomitant]
     Indication: BLOOD CHOLESTEROL INCREASED
  6. EFFIENT [Concomitant]
     Indication: ANTICOAGULANT THERAPY
  7. NIASPAN [Suspect]
     Dates: start: 20111230

REACTIONS (2)
  - DIARRHOEA [None]
  - FLUSHING [None]
